FAERS Safety Report 15539639 (Version 1)
Quarter: 2018Q4

REPORT INFORMATION
  Report Type: Spontaneous
  Country: US (occurrence: US)
  Receive Date: 20181023
  Receipt Date: 20181023
  Transmission Date: 20190205
  Serious: No
  Sender: FDA-Public Use
  Company Number: US-INSYS THERAPEUTICS, INC-INS201808-000291

PATIENT
  Sex: Female

DRUGS (2)
  1. SYNDROS [Suspect]
     Active Substance: DRONABINOL
     Indication: NAUSEA
  2. SYNDROS [Suspect]
     Active Substance: DRONABINOL
     Indication: VOMITING

REACTIONS (1)
  - Diarrhoea [Unknown]
